FAERS Safety Report 6800352-9 (Version None)
Quarter: 2010Q2

REPORT INFORMATION
  Report Type: 
  Country: None (occurrence: None)
  Receive Date: 20100623
  Receipt Date: 20100615
  Transmission Date: 20101027
  Serious: Yes (Disabling)
  Sender: FDA-Public Use
  Company Number: 2010SP033685

PATIENT
  Sex: Female

DRUGS (1)
  1. PEGINTRON (PEGINTERFERON ALFA-2B /01543001/) [Suspect]
     Indication: DRUG USE FOR UNKNOWN INDICATION

REACTIONS (4)
  - BONE PAIN [None]
  - DYSPNOEA [None]
  - MYALGIA [None]
  - WHEELCHAIR USER [None]
